APPROVED DRUG PRODUCT: NICOTINE POLACRILEX
Active Ingredient: NICOTINE POLACRILEX
Strength: EQ 2MG BASE
Dosage Form/Route: TROCHE/LOZENGE;ORAL
Application: A203690 | Product #001
Applicant: PERRIGO PHARMA INTERNATIONAL DAC
Approved: Oct 9, 2012 | RLD: No | RS: No | Type: OTC